FAERS Safety Report 25174913 (Version 3)
Quarter: 2025Q4

REPORT INFORMATION
  Report Type: Spontaneous
  Country: US (occurrence: US)
  Receive Date: 20250408
  Receipt Date: 20251013
  Transmission Date: 20260118
  Serious: Yes (Other)
  Sender: MALLINCKRODT
  Company Number: US-MALLINCKRODT-MNK202501744

PATIENT
  Age: 60 Year
  Sex: Female

DRUGS (6)
  1. CORTICOTROPIN [Suspect]
     Active Substance: CORTICOTROPIN
     Indication: Rheumatoid arthritis
     Route: 058
     Dates: start: 202406
  2. CORTICOTROPIN [Suspect]
     Active Substance: CORTICOTROPIN
     Indication: Rheumatoid arthritis
     Dosage: 80 UNITS
     Dates: start: 20240712
  3. CORTICOTROPIN [Suspect]
     Active Substance: CORTICOTROPIN
     Indication: Osteoporosis
  4. ASPIRIN [Concomitant]
     Active Substance: ASPIRIN
     Dosage: UNKNOWN
  5. OXYGEN [Concomitant]
     Active Substance: OXYGEN
     Dosage: UNKNOWN
  6. MORPHINE [Concomitant]
     Active Substance: MORPHINE

REACTIONS (11)
  - Cataract [Unknown]
  - Blood pressure increased [Unknown]
  - Anxiety [Not Recovered/Not Resolved]
  - Hypophagia [Unknown]
  - Astigmatism [Unknown]
  - Fall [Unknown]
  - Face injury [Recovering/Resolving]
  - Nasopharyngitis [Not Recovered/Not Resolved]
  - Insomnia [Recovering/Resolving]
  - Fatigue [Unknown]
  - Depression [Not Recovered/Not Resolved]

NARRATIVE: CASE EVENT DATE: 20250301
